FAERS Safety Report 8958342 (Version 2)
Quarter: 2013Q2

REPORT INFORMATION
  Report Type: Spontaneous
  Country: BR (occurrence: BR)
  Receive Date: 20121210
  Receipt Date: 20130503
  Transmission Date: 20140414
  Serious: Yes (Other)
  Sender: FDA-Public Use
  Company Number: BR-BAYER-2012-126541

PATIENT
  Age: 30 Year
  Sex: Female
  Weight: 65 kg

DRUGS (2)
  1. QLAIRA [Suspect]
     Indication: CONTRACEPTION
     Dosage: 1 DF, QD
     Route: 048
     Dates: start: 201210, end: 201212
  2. QLAIRA [Interacting]
     Indication: CONTRACEPTION
     Dosage: 1 DF, QD
     Route: 048
     Dates: start: 201210, end: 2012

REACTIONS (8)
  - Respiratory tract infection [Recovered/Resolved]
  - Dyspnoea [None]
  - Chest pain [None]
  - Suffocation feeling [None]
  - Chest discomfort [None]
  - Depressive symptom [Recovered/Resolved]
  - Insomnia [Recovered/Resolved]
  - Heart rate abnormal [None]
